FAERS Safety Report 16572378 (Version 1)
Quarter: 2019Q3

REPORT INFORMATION
  Report Type: Spontaneous
  Country: US (occurrence: US)
  Receive Date: 20190531
  Receipt Date: 20190531
  Transmission Date: 20191004
  Serious: Yes (Hospitalization)
  Sender: FDA-Public Use
  Company Number: None

PATIENT
  Age: 80 Year
  Sex: Male
  Weight: 97.5 kg

DRUGS (1)
  1. LENALIDOMIDE (CC-5013) (703813) [Suspect]
     Active Substance: LENALIDOMIDE
     Dates: end: 20180418

REACTIONS (2)
  - Cellulitis [None]
  - Arthralgia [None]

NARRATIVE: CASE EVENT DATE: 20180322
